FAERS Safety Report 9614298 (Version 1)
Quarter: 2013Q4

REPORT INFORMATION
  Report Type: Spontaneous
  Country: US (occurrence: US)
  Receive Date: 20131011
  Receipt Date: 20131011
  Transmission Date: 20140711
  Serious: Yes (Other)
  Sender: FDA-Public Use
  Company Number: US-ASTRAZENECA-2013SE73863

PATIENT
  Age: 64 Year
  Sex: Female
  Weight: 94.3 kg

DRUGS (36)
  1. SYMBICORT [Suspect]
     Indication: CHRONIC OBSTRUCTIVE PULMONARY DISEASE
     Dosage: 160/4.5 MCG, 2 PUFFS,  BID
     Route: 055
  2. SYMBICORT [Suspect]
     Indication: ASTHMA
     Dosage: 160/4.5 MCG, 2 PUFFS,  BID
     Route: 055
  3. SYMBICORT [Suspect]
     Indication: EMPHYSEMA
     Dosage: 160/4.5 MCG, 2 PUFFS,  BID
     Route: 055
  4. SYMBICORT [Suspect]
     Indication: CHRONIC OBSTRUCTIVE PULMONARY DISEASE
     Dosage: 160/4.5 MCG, 3 PUFFS,  BID
     Route: 055
     Dates: start: 20130419
  5. SYMBICORT [Suspect]
     Indication: ASTHMA
     Dosage: 160/4.5 MCG, 3 PUFFS,  BID
     Route: 055
     Dates: start: 20130419
  6. SYMBICORT [Suspect]
     Indication: EMPHYSEMA
     Dosage: 160/4.5 MCG, 3 PUFFS,  BID
     Route: 055
     Dates: start: 20130419
  7. SYMBICORT [Suspect]
     Indication: CHRONIC OBSTRUCTIVE PULMONARY DISEASE
     Dosage: 160/4.5 MCG, 2 PUFFS,  BID
     Route: 055
  8. SYMBICORT [Suspect]
     Indication: ASTHMA
     Dosage: 160/4.5 MCG, 2 PUFFS,  BID
     Route: 055
  9. SYMBICORT [Suspect]
     Indication: EMPHYSEMA
     Dosage: 160/4.5 MCG, 2 PUFFS,  BID
     Route: 055
  10. ATENOLOL [Suspect]
     Route: 048
  11. PRILOSEC OTC [Suspect]
     Route: 048
  12. NITROSTAT [Concomitant]
  13. LOMITIL [Concomitant]
     Indication: COLITIS ULCERATIVE
  14. NYSTATIN CREME [Concomitant]
  15. NYSTATIN MOUTHWASH [Concomitant]
     Dosage: MOUTH WASH
  16. HYDROXY [Concomitant]
     Indication: URTICARIA
     Dosage: PRN
  17. OXYCODONE [Concomitant]
     Indication: PAIN
  18. XANAX [Concomitant]
  19. PYRIDIUM [Concomitant]
  20. TRENTAL [Concomitant]
  21. METANX [Concomitant]
     Dosage: DAILY
  22. DIFLUCAN [Concomitant]
  23. XOPINEX [Concomitant]
     Indication: ASTHMA
     Dosage: 2 PUFFS QID
  24. FUROSEMIDE [Concomitant]
     Indication: DIURETIC THERAPY
  25. SINGULAIR [Concomitant]
     Indication: ASTHMA
  26. POTASSIUM CHLORIDE [Concomitant]
  27. ALBUTEROL SULFATE [Concomitant]
  28. BIAXIN [Concomitant]
  29. B12 SHOT [Concomitant]
     Dosage: MONTH
  30. PROMETHIZIDE [Concomitant]
  31. SKELAXAN [Concomitant]
     Indication: MUSCLE RELAXANT THERAPY
  32. PREDNISONE [Concomitant]
  33. FISH OIL [Concomitant]
  34. FLAX SEED OIL [Concomitant]
  35. PROBIOTIC [Concomitant]
  36. PRO AIR [Concomitant]
     Indication: INHALATION THERAPY
     Dosage: PRN

REACTIONS (9)
  - Cataract [Not Recovered/Not Resolved]
  - Confusional state [Unknown]
  - Urinary tract infection [Unknown]
  - Bronchitis chronic [Unknown]
  - Weight decreased [Unknown]
  - Adverse event [Unknown]
  - Urticaria [Unknown]
  - Psychomotor hyperactivity [Unknown]
  - Off label use [Unknown]
